FAERS Safety Report 14267539 (Version 1)
Quarter: 2017Q4

REPORT INFORMATION
  Report Type: Spontaneous
  Country: US (occurrence: US)
  Receive Date: 20171209
  Receipt Date: 20171209
  Transmission Date: 20180321
  Serious: Yes (Other)
  Sender: FDA-Public Use
  Company Number: None

PATIENT
  Sex: Male
  Weight: 81.9 kg

DRUGS (7)
  1. VITAMIN D [Concomitant]
     Active Substance: CHOLECALCIFEROL
  2. FREEDA NATURAL CHEWABLE CAL/MAG CALCIUM AND MAGNESIUM SUPPLEMENT [Concomitant]
  3. FREEDA PURE ZINC LOZENGES [Concomitant]
  4. RITUXAN [Suspect]
     Active Substance: RITUXIMAB
     Indication: B-CELL LYMPHOMA
     Dosage: ?          OTHER STRENGTH:MG/M2;?
     Dates: start: 20160524, end: 20170817
  5. FREEDA PURE DELTA D3 [Concomitant]
  6. ACYCLOVIR. [Concomitant]
     Active Substance: ACYCLOVIR
  7. FREEDA PURE VITAMIN C [Concomitant]

REACTIONS (1)
  - Neutrophil count decreased [None]

NARRATIVE: CASE EVENT DATE: 20171205
